FAERS Safety Report 14380360 (Version 2)
Quarter: 2018Q1

REPORT INFORMATION
  Report Type: Report from Study
  Country: FR (occurrence: FR)
  Receive Date: 20180112
  Receipt Date: 20180122
  Transmission Date: 20180509
  Serious: Yes (Hospitalization)
  Sender: FDA-Public Use
  Company Number: FR-JNJFOC-20180105631

PATIENT
  Age: 59 Year
  Sex: Male

DRUGS (8)
  1. OBINUTUZUMAB. [Suspect]
     Active Substance: OBINUTUZUMAB
     Indication: CHRONIC LYMPHOCYTIC LEUKAEMIA
     Dosage: 1000 MG EVERY 1 CYCLE (INTRAVENOUS DRIP)
     Route: 042
     Dates: start: 20170327, end: 20171205
  2. FLUDARABINE [Suspect]
     Active Substance: FLUDARABINE PHOSPHATE
     Indication: CHRONIC LYMPHOCYTIC LEUKAEMIA
     Dosage: D2 TO D4 (LAST ADMINISTRATION BEFORE SAE)
     Route: 048
     Dates: start: 20171206, end: 20171208
  3. IBRUTINIB [Suspect]
     Active Substance: IBRUTINIB
     Indication: CHRONIC LYMPHOCYTIC LEUKAEMIA
     Route: 048
     Dates: start: 20170329, end: 20180102
  4. FLUDARABINE [Suspect]
     Active Substance: FLUDARABINE PHOSPHATE
     Indication: CHRONIC LYMPHOCYTIC LEUKAEMIA
     Dosage: D2 TO D4 (LAST ADMINISTRATION BEFORE SAE)
     Route: 048
     Dates: start: 20180102
  5. ENDOXAN [Suspect]
     Active Substance: CYCLOPHOSPHAMIDE
     Indication: CHRONIC LYMPHOCYTIC LEUKAEMIA
     Dosage: D2 TO D4 (LAST ADMINISTRATION BEFORE SAE)
     Route: 048
     Dates: start: 20171206, end: 20171208
  6. ASPIRIN PROTECT [Concomitant]
     Active Substance: ASPIRIN
     Indication: PRODUCT USED FOR UNKNOWN INDICATION
     Route: 065
  7. ENDOXAN [Suspect]
     Active Substance: CYCLOPHOSPHAMIDE
     Indication: CHRONIC LYMPHOCYTIC LEUKAEMIA
     Dosage: D2 TO D4 (LAST ADMINISTRATION BEFORE SAE)
     Route: 048
     Dates: start: 20180102
  8. OBINUTUZUMAB. [Suspect]
     Active Substance: OBINUTUZUMAB
     Indication: CHRONIC LYMPHOCYTIC LEUKAEMIA
     Dosage: 1000 MG EVERY 1 CYCLE (INTRAVENOUS DRIP)
     Route: 042
     Dates: start: 20180102

REACTIONS (2)
  - Pericardial haemorrhage [Recovering/Resolving]
  - Cardiomyopathy [Recovering/Resolving]

NARRATIVE: CASE EVENT DATE: 20171223
